FAERS Safety Report 4774011-0 (Version None)
Quarter: 2005Q3

REPORT INFORMATION
  Report Type: 
  Country: None (occurrence: None)
  Receive Date: 20050920
  Receipt Date: 20050915
  Transmission Date: 20060218
  Serious: Yes (Hospitalization)
  Sender: FDA-Public Use
  Company Number: 200518161GDDC

PATIENT
  Age: 32 Year
  Sex: Female

DRUGS (6)
  1. LANTUS [Suspect]
     Indication: DIABETES MELLITUS INSULIN-DEPENDENT
     Route: 065
  2. ACTRAPID [Concomitant]
     Indication: DIABETES MELLITUS INSULIN-DEPENDENT
     Route: 065
  3. METHADONE HCL [Concomitant]
     Indication: ABNORMAL BEHAVIOUR
     Route: 048
  4. METHADONE HCL [Concomitant]
     Indication: MENTAL DISORDER
     Route: 048
  5. LORAZEPAM [Concomitant]
     Route: 048
  6. DORMICUM [Concomitant]
     Route: 048

REACTIONS (2)
  - DRUG EXPOSURE DURING PREGNANCY [None]
  - INTRA-UTERINE DEATH [None]
